FAERS Safety Report 8455069-4 (Version None)
Quarter: 2012Q2

REPORT INFORMATION
  Report Type: 
  Country: None (occurrence: None)
  Receive Date: 20120615
  Receipt Date: 20120615
  Transmission Date: 20120825
  Serious: Yes (Life-Threatening, Other)
  Sender: FDA-Public Use
  Company Number: None

PATIENT
  Sex: Female
  Weight: 51.7101 kg

DRUGS (1)
  1. ESCITALOPRAM [Suspect]
     Indication: COLITIS
     Dosage: 1 PILL 1 A DAY ORAL
     Route: 048
     Dates: start: 20120508, end: 20120512

REACTIONS (25)
  - DIZZINESS [None]
  - CHEST PAIN [None]
  - IRRITABILITY [None]
  - CRYING [None]
  - UNEVALUABLE EVENT [None]
  - NAUSEA [None]
  - ASTHENIA [None]
  - AGGRESSION [None]
  - FATIGUE [None]
  - TREMOR [None]
  - VERTIGO [None]
  - HYPERHIDROSIS [None]
  - CONSTIPATION [None]
  - INSOMNIA [None]
  - GAIT DISTURBANCE [None]
  - ANXIETY [None]
  - HEART RATE INCREASED [None]
  - HOSTILITY [None]
  - RESTLESSNESS [None]
  - HEADACHE [None]
  - VOMITING [None]
  - ABDOMINAL PAIN UPPER [None]
  - EATING DISORDER [None]
  - BLOOD PRESSURE FLUCTUATION [None]
  - PYREXIA [None]
